FAERS Safety Report 16380050 (Version 2)
Quarter: 2019Q2

REPORT INFORMATION
  Report Type: Report from Study
  Country: None (occurrence: US)
  Receive Date: 20190531
  Receipt Date: 20190603
  Transmission Date: 20190711
  Serious: Yes (Other)
  Sender: FDA-Public Use
  Company Number: US-ABBVIE-19K-163-2800075-00

PATIENT
  Age: 69 Year
  Sex: Female

DRUGS (1)
  1. MAVYRET [Suspect]
     Active Substance: GLECAPREVIR\PIBRENTASVIR
     Indication: HEPATITIS C
     Dosage: TAKE 100/40 MG 3 TABLETS BY MOUTH DAILY WITH FOOD
     Route: 048
     Dates: start: 20190507

REACTIONS (5)
  - Hepatic cirrhosis [Recovering/Resolving]
  - Somnolence [Recovering/Resolving]
  - Constipation [Unknown]
  - Food intolerance [Unknown]
  - Dry skin [Unknown]

NARRATIVE: CASE EVENT DATE: 201905
